FAERS Safety Report 7038139-7 (Version None)
Quarter: 2010Q4

REPORT INFORMATION
  Report Type: 
  Country: None (occurrence: None)
  Receive Date: 20101011
  Receipt Date: 20100925
  Transmission Date: 20110411
  Serious: Yes (Other)
  Sender: FDA-Public Use
  Company Number: PHHY2010BR66969

PATIENT

DRUGS (7)
  1. METFORMIN [Suspect]
     Dosage: 850 MG
  2. METOPROLOL SUCCINATE [Suspect]
     Dosage: 100 MG
  3. INDAPAMIDE [Concomitant]
  4. ACETYLSALICYLIC ACID SRT [Concomitant]
     Dosage: 200 MG
  5. PANTOPRAZOLE [Concomitant]
     Dosage: 40 MG
  6. GLIBENCLAMIDE [Concomitant]
  7. SIMVASTATIN [Concomitant]
     Dosage: 20 MG

REACTIONS (10)
  - BRAIN NATRIURETIC PEPTIDE INCREASED [None]
  - DIASTOLIC DYSFUNCTION [None]
  - DYSPNOEA [None]
  - ELECTROCARDIOGRAM REPOLARISATION ABNORMALITY [None]
  - GLYCOSYLATED HAEMOGLOBIN INCREASED [None]
  - HYPERTENSION [None]
  - LEFT ATRIAL DILATATION [None]
  - ORTHOPNOEA [None]
  - PULMONARY HYPERTENSION [None]
  - RALES [None]
